FAERS Safety Report 5403732-1 (Version None)
Quarter: 2007Q3

REPORT INFORMATION
  Report Type: 
  Country: None (occurrence: None)
  Receive Date: 20070802
  Receipt Date: 20070723
  Transmission Date: 20080115
  Serious: Yes (Other)
  Sender: FDA-Public Use
  Company Number: US-JNJFOC-20070705569

PATIENT
  Sex: Male

DRUGS (2)
  1. CONCERTA [Suspect]
     Indication: ATTENTION DEFICIT/HYPERACTIVITY DISORDER
     Route: 048
  2. WELLBUTRIN [Concomitant]
     Indication: DEPRESSION

REACTIONS (3)
  - DIZZINESS [None]
  - PALPITATIONS [None]
  - PANIC ATTACK [None]
